FAERS Safety Report 21548651 (Version 1)
Quarter: 2022Q4

REPORT INFORMATION
  Report Type: Spontaneous
  Country: US (occurrence: US)
  Receive Date: 20221103
  Receipt Date: 20221103
  Transmission Date: 20230113
  Serious: Yes (Other)
  Sender: FDA-Public Use
  Company Number: US-GLAXOSMITHKLINE-USCH2022041362

PATIENT

DRUGS (1)
  1. ABREVA [Suspect]
     Active Substance: DOCOSANOL
     Indication: Oral herpes
     Dosage: UNK

REACTIONS (9)
  - Cellulitis [Unknown]
  - Swelling face [Unknown]
  - Oral herpes [Unknown]
  - Condition aggravated [Unknown]
  - Feeling abnormal [Unknown]
  - Urticaria [Unknown]
  - Pain [Unknown]
  - Feeding disorder [Unknown]
  - Emotional distress [Unknown]
